FAERS Safety Report 8201217-0 (Version None)
Quarter: 2012Q1

REPORT INFORMATION
  Report Type: 
  Country: None (occurrence: None)
  Receive Date: 20120312
  Receipt Date: 20120305
  Transmission Date: 20120608
  Serious: Yes (Other)
  Sender: FDA-Public Use
  Company Number: PHEH2011US08091

PATIENT
  Sex: Male

DRUGS (1)
  1. EXTAVIA [Suspect]
     Indication: MULTIPLE SCLEROSIS
     Dosage: 0.25 MG, QOD
     Route: 058
     Dates: start: 20111021

REACTIONS (15)
  - CENTRAL NERVOUS SYSTEM LESION [None]
  - HYPOAESTHESIA [None]
  - ASTHENIA [None]
  - INFLUENZA LIKE ILLNESS [None]
  - SENSORY LOSS [None]
  - PAIN [None]
  - MOVEMENT DISORDER [None]
  - BALANCE DISORDER [None]
  - FALL [None]
  - FATIGUE [None]
  - HEADACHE [None]
  - PYREXIA [None]
  - PARAESTHESIA [None]
  - FEELING ABNORMAL [None]
  - SENSATION OF HEAVINESS [None]
